FAERS Safety Report 4618203-X (Version None)
Quarter: 2005Q1

REPORT INFORMATION
  Report Type: 
  Country: None (occurrence: None)
  Receive Date: 20050322
  Receipt Date: 20050309
  Transmission Date: 20050727
  Serious: Yes (Hospitalization)
  Sender: FDA-Public Use
  Company Number: 2005043370

PATIENT
  Age: 70 Year
  Sex: Female

DRUGS (2)
  1. HALCION [Suspect]
     Indication: INSOMNIA
     Dosage: ORAL
     Route: 048
  2. DIAZEPAM [Concomitant]

REACTIONS (2)
  - ABDOMINAL PAIN [None]
  - OVERDOSE [None]
